FAERS Safety Report 10334039 (Version 2)
Quarter: 2014Q3

REPORT INFORMATION
  Report Type: Spontaneous
  Country: JP (occurrence: JP)
  Receive Date: 20140723
  Receipt Date: 20140723
  Transmission Date: 20150326
  Serious: Yes (Other)
  Sender: FDA-Public Use
  Company Number: JP-009507513-1406JPN001638

PATIENT
  Age: 90 Year
  Sex: Female
  Weight: 62 kg

DRUGS (7)
  1. FOSAMAX [Suspect]
     Active Substance: ALENDRONATE SODIUM
     Indication: OSTEOPOROSIS
     Dosage: 35 MG, QW
     Route: 048
     Dates: start: 20140514, end: 20140521
  2. LIPOVAS TABLETS 5 [Concomitant]
     Active Substance: PRAVASTATIN SODIUM
     Indication: DYSLIPIDAEMIA
     Dosage: 5 MG, QD
     Route: 048
  3. PATELL [Concomitant]
     Indication: BACK PAIN
     Dosage: TAP FORMULATION
     Route: 062
  4. ATELEC [Concomitant]
     Active Substance: CILNIDIPINE
     Indication: HYPERTENSION
     Dosage: 5 MG, QD
     Route: 048
  5. CALFINA [Concomitant]
     Indication: OSTEOPOROSIS
     Dosage: 1 MICROGRAM, QD
     Route: 048
     Dates: start: 20140514, end: 20140527
  6. DIOVAN [Concomitant]
     Active Substance: VALSARTAN
     Indication: HYPERTENSION
     Dosage: 160 MG, QD
     Route: 048
  7. THYRADIN [Concomitant]
     Active Substance: LEVOTHYROXINE
     Indication: HYPOTHYROIDISM
     Dosage: 50 MICROGRAM, QD
     Route: 048

REACTIONS (11)
  - Pyrexia [Recovering/Resolving]
  - Abdominal discomfort [Recovered/Resolved]
  - Pyrexia [Recovered/Resolved]
  - Nausea [Recovered/Resolved]
  - Nausea [Recovering/Resolving]
  - Bone pain [Recovered/Resolved]
  - Abdominal discomfort [Recovered/Resolved]
  - Nasopharyngitis [Recovering/Resolving]
  - Pain [Recovered/Resolved]
  - Pain [Recovering/Resolving]
  - Nasopharyngitis [Recovered/Resolved]

NARRATIVE: CASE EVENT DATE: 20140514
